FAERS Safety Report 16051419 (Version 1)
Quarter: 2019Q1

REPORT INFORMATION
  Report Type: Spontaneous
  Country: US (occurrence: US)
  Receive Date: 20190307
  Receipt Date: 20190307
  Transmission Date: 20190418
  Serious: Yes (Other)
  Sender: FDA-Public Use
  Company Number: None

PATIENT
  Age: 40 Year
  Sex: Male
  Weight: 100.8 kg

DRUGS (3)
  1. RED VEIN BORNEO KRATOM [Suspect]
     Active Substance: HERBALS\MITRAGYNINE
     Indication: PRODUCT USED FOR UNKNOWN INDICATION
  2. MELATONIN [Concomitant]
     Active Substance: MELATONIN
  3. IBUPROFIN [Concomitant]
     Active Substance: IBUPROFEN

REACTIONS (5)
  - Food interaction [None]
  - Heart rate increased [None]
  - Palpitations [None]
  - Product complaint [None]
  - Drug interaction [None]

NARRATIVE: CASE EVENT DATE: 20190210
